FAERS Safety Report 20309796 (Version 1)
Quarter: 2022Q1

REPORT INFORMATION
  Report Type: Spontaneous
  Country: UY (occurrence: None)
  Receive Date: 20220107
  Receipt Date: 20220107
  Transmission Date: 20220423
  Serious: Yes (Other)
  Sender: FDA-Public Use
  Company Number: UY-Fresenius Kabi-FK202200060

PATIENT
  Age: 66 Year
  Sex: Male

DRUGS (4)
  1. POTASSIUM CHLORIDE [Suspect]
     Active Substance: POTASSIUM CHLORIDE
     Indication: Product used for unknown indication
     Dosage: ROUTE OF ADMIN REPORTED AS: THROUGH THE EPIDURAL CATHETER
     Route: 008
  2. SODIUM CHLORIDE [Suspect]
     Active Substance: SODIUM CHLORIDE
     Indication: Vehicle solution use
     Dosage: 125 ML/H?ROUTE OF ADMIN REPORTED THROUGH THE EPIDURAL CATHETER
     Route: 008
  3. FENTANYL [Concomitant]
     Active Substance: FENTANYL
  4. BUPIVACAINE HYDROCHLORIDE [Concomitant]
     Active Substance: BUPIVACAINE HYDROCHLORIDE
     Dosage: 6ML/H
     Route: 065

REACTIONS (5)
  - Wrong product administered [Recovered/Resolved]
  - Incorrect route of product administration [Recovered/Resolved]
  - Paresis [Recovered/Resolved]
  - Paralysis [Recovered/Resolved]
  - Sensory loss [Recovered/Resolved]
